FAERS Safety Report 8060255-1 (Version None)
Quarter: 2012Q1

REPORT INFORMATION
  Report Type: 
  Country: None (occurrence: None)
  Receive Date: 20120120
  Receipt Date: 20120111
  Transmission Date: 20120608
  Serious: Yes (Life-Threatening, Hospitalization)
  Sender: FDA-Public Use
  Company Number: US-ACTELION-A-NJ2012-59672

PATIENT

DRUGS (4)
  1. TRACLEER [Suspect]
     Indication: PULMONARY ARTERIAL HYPERTENSION
     Dosage: UNK
     Route: 048
     Dates: start: 20031226
  2. COUMADIN [Suspect]
  3. TYVASO [Concomitant]
  4. SILDENAFIL [Concomitant]

REACTIONS (3)
  - LETHARGY [None]
  - VOMITING [None]
  - HAEMORRHAGE INTRACRANIAL [None]
